FAERS Safety Report 5946885-9 (Version None)
Quarter: 2008Q4

REPORT INFORMATION
  Report Type: 
  Country: None (occurrence: None)
  Receive Date: 20081107
  Receipt Date: 20081107
  Transmission Date: 20090506
  Serious: Yes (Other)
  Sender: FDA-Public Use
  Company Number: None

PATIENT
  Age: 54 Year
  Sex: Male
  Weight: 77.1115 kg

DRUGS (1)
  1. ALENDRONATE SODIUM [Suspect]
     Indication: INTERVERTEBRAL DISC DEGENERATION
     Dosage: 1 PILL WEEKLY PO
     Route: 048
     Dates: start: 20080301, end: 20081101

REACTIONS (3)
  - DRUG INEFFECTIVE [None]
  - NIGHTMARE [None]
  - POOR QUALITY SLEEP [None]
